FAERS Safety Report 8451491-0 (Version None)
Quarter: 2012Q2

REPORT INFORMATION
  Report Type: 
  Country: None (occurrence: None)
  Receive Date: 20120620
  Receipt Date: 20120305
  Transmission Date: 20120825
  Serious: No
  Sender: FDA-Public Use
  Company Number: US-VERTEX PHARMACEUTICALS INC.-AE-2012-003140

PATIENT
  Sex: Female

DRUGS (4)
  1. INCIVEK [Suspect]
     Indication: HEPATITIS C
     Route: 048
     Dates: start: 20120223
  2. RIBASPHERE [Concomitant]
     Indication: HEPATITIS C
     Route: 048
     Dates: start: 20120223
  3. PEGASYS [Concomitant]
     Indication: HEPATITIS C
     Dates: start: 20120223
  4. LEVOTHYROXINE SODIUM [Concomitant]
     Indication: THYROID DISORDER

REACTIONS (7)
  - VISION BLURRED [None]
  - ANORECTAL DISCOMFORT [None]
  - URINARY TRACT INFECTION [None]
  - ABDOMINAL DISCOMFORT [None]
  - FATIGUE [None]
  - EUPHORIC MOOD [None]
  - NAUSEA [None]
